FAERS Safety Report 18786019 (Version 1)
Quarter: 2021Q1

REPORT INFORMATION
  Report Type: Spontaneous
  Country: US (occurrence: US)
  Receive Date: 20210125
  Receipt Date: 20210125
  Transmission Date: 20210419
  Serious: No
  Sender: FDA-Public Use
  Company Number: US-NATCO PHARMA-2020NAT00021

PATIENT
  Age: 55 Year
  Sex: Female
  Weight: 56.69 kg

DRUGS (4)
  1. CHLOROQUINE PHOSPHATE. [Suspect]
     Active Substance: CHLOROQUINE PHOSPHATE
     Dosage: 500 MG, 1X/DAY ^MORE FREQUENTLY DAILY^
     Route: 048
     Dates: start: 2020, end: 202003
  2. CHLOROQUINE PHOSPHATE. [Suspect]
     Active Substance: CHLOROQUINE PHOSPHATE
     Indication: SYSTEMIC LUPUS ERYTHEMATOSUS
     Dosage: 500 MG, EVERY 72 HOURS (EVERY 3RD DAY)
     Route: 048
     Dates: start: 2020, end: 2020
  3. DESLORATADINE. [Concomitant]
     Active Substance: DESLORATADINE
  4. CHLOROQUINE PHOSPHATE. [Suspect]
     Active Substance: CHLOROQUINE PHOSPHATE
     Indication: SYSTEMIC LUPUS ERYTHEMATOSUS
     Dosage: 250 MG, 1X/DAY
     Route: 048
     Dates: start: 202003, end: 202004

REACTIONS (5)
  - Dermatitis allergic [Recovering/Resolving]
  - Bite [Recovered/Resolved]
  - Off label use [Recovered/Resolved]
  - Urticarial dermatitis [Recovering/Resolving]
  - Hypersensitivity [Recovering/Resolving]

NARRATIVE: CASE EVENT DATE: 2020
